FAERS Safety Report 19511070 (Version 4)
Quarter: 2022Q4

REPORT INFORMATION
  Report Type: Spontaneous
  Country: US (occurrence: US)
  Receive Date: 20210709
  Receipt Date: 20221020
  Transmission Date: 20230113
  Serious: No
  Sender: FDA-Public Use
  Company Number: US-BRISTOL-MYERS SQUIBB COMPANY-BMS-2021-066823

PATIENT
  Age: 55 Year
  Sex: Female

DRUGS (3)
  1. ORENCIA [Suspect]
     Active Substance: ABATACEPT
     Indication: Rheumatoid arthritis
     Route: 058
     Dates: start: 20190726
  2. ORENCIA [Suspect]
     Active Substance: ABATACEPT
     Indication: Haemarthrosis
     Dosage: EVERY WEEK
     Route: 058
     Dates: start: 20190726
  3. ORENCIA [Suspect]
     Active Substance: ABATACEPT
     Indication: Osteoarthritis

REACTIONS (4)
  - Fatigue [Unknown]
  - Asthma [Unknown]
  - Sinusitis [Unknown]
  - Rheumatoid arthritis [Unknown]
